FAERS Safety Report 20755099 (Version 1)
Quarter: 2022Q2

REPORT INFORMATION
  Report Type: Spontaneous
  Country: US (occurrence: US)
  Receive Date: 20220427
  Receipt Date: 20220427
  Transmission Date: 20220721
  Serious: Yes (Other)
  Sender: FDA-Public Use
  Company Number: US-JNJFOC-20220444326

PATIENT
  Sex: Female

DRUGS (2)
  1. OPSUMIT [Suspect]
     Active Substance: MACITENTAN
     Indication: Product used for unknown indication
     Route: 048
  2. IRON [Suspect]
     Active Substance: IRON
     Indication: Blood iron decreased
     Route: 065

REACTIONS (3)
  - Rectal prolapse [Unknown]
  - Blood iron decreased [Unknown]
  - Constipation [Unknown]
